FAERS Safety Report 24652755 (Version 1)
Quarter: 2024Q4

REPORT INFORMATION
  Report Type: Spontaneous
  Country: GB (occurrence: GB)
  Receive Date: 20241122
  Receipt Date: 20241122
  Transmission Date: 20250115
  Serious: Yes (Other)
  Sender: TEVA
  Company Number: GB-MHRA-TPP46789775C9435528YC1731436013999

PATIENT
  Age: 36 Year
  Sex: Female
  Weight: 66 kg

DRUGS (6)
  1. FLUCONAZOLE [Suspect]
     Active Substance: FLUCONAZOLE
     Indication: Ill-defined disorder
     Route: 065
     Dates: start: 20241108
  2. OMEPRAZOLE [Concomitant]
     Active Substance: OMEPRAZOLE
     Indication: Ill-defined disorder
     Dosage: TAKE ONE CAPSULE DAILY FOR STOMACH
     Route: 065
     Dates: start: 20240917, end: 20241015
  3. YASMIN [Concomitant]
     Active Substance: DROSPIRENONE\ETHINYL ESTRADIOL
     Indication: Ill-defined disorder
     Dosage: TAKE ONE DAILY (GENERIC NAME: ETHINYLESTRADIOL ...
     Route: 065
     Dates: start: 20230907
  4. MICONAZOLE [Concomitant]
     Active Substance: MICONAZOLE
     Indication: Ill-defined disorder
     Dosage: APPLY AFTER A FEED AS DIRECTED FOR UP TO 10 DAYS AFTER SYMPTOMS HAVE SUBSIDED .
     Route: 065
     Dates: start: 20241105
  5. ACYCLOVIR [Concomitant]
     Active Substance: ACYCLOVIR
     Indication: Ill-defined disorder
     Dosage: TIME INTERVAL: 0.33333333 DAYS: TAKE ONE THREE TIMES A DAY
     Route: 065
     Dates: start: 20240917, end: 20241002
  6. ITRACONAZOLE [Concomitant]
     Active Substance: ITRACONAZOLE
     Indication: Ill-defined disorder
     Dosage: TAKE ONE TWICE A DAY
     Route: 065

REACTIONS (1)
  - Rash papular [Recovering/Resolving]
